FAERS Safety Report 12703430 (Version 3)
Quarter: 2017Q2

REPORT INFORMATION
  Report Type: Report from Study
  Country: DE (occurrence: DE)
  Receive Date: 20160831
  Receipt Date: 20170519
  Transmission Date: 20170830
  Serious: Yes (Hospitalization)
  Sender: FDA-Public Use
  Company Number: DE-JNJFOC-20150411855

PATIENT
  Age: 53 Year
  Sex: Male
  Weight: 72 kg

DRUGS (5)
  1. PREDNIHEXAL [Concomitant]
     Active Substance: PREDNISOLONE ACETATE
     Indication: COLITIS ULCERATIVE
     Route: 065
     Dates: start: 20150304
  2. SIMPONI [Suspect]
     Active Substance: GOLIMUMAB
     Indication: COLITIS ULCERATIVE
     Route: 058
     Dates: start: 20150310, end: 20150608
  3. INFLECTRA [Suspect]
     Active Substance: INFLIXIMAB-DYYB
     Indication: PRODUCT USED FOR UNKNOWN INDICATION
     Dosage: 5 MG/KG GIVEN ON WEEK 0, 2 AND 6 FOLLOWED BY EVERY 8 WEEKS
     Route: 065
     Dates: start: 20150622, end: 20151103
  4. PENTASA [Concomitant]
     Active Substance: MESALAMINE
     Indication: COLITIS ULCERATIVE
     Route: 065
     Dates: start: 20140522
  5. SIMPONI [Suspect]
     Active Substance: GOLIMUMAB
     Indication: COLITIS ULCERATIVE
     Route: 058
     Dates: start: 20150310, end: 20150310

REACTIONS (9)
  - Incisional hernia [Recovered/Resolved]
  - Bursitis [Recovered/Resolved]
  - Drug ineffective [Unknown]
  - Incorrect dose administered [Unknown]
  - Off label use [Unknown]
  - Lower gastrointestinal haemorrhage [Recovered/Resolved]
  - Hypertension [Recovering/Resolving]
  - Ileostomy [Recovering/Resolving]
  - Colitis ulcerative [Recovering/Resolving]

NARRATIVE: CASE EVENT DATE: 20150310
